FAERS Safety Report 7215258-3 (Version None)
Quarter: 2011Q1

REPORT INFORMATION
  Report Type: 
  Country: None (occurrence: None)
  Receive Date: 20110105
  Receipt Date: 20110105
  Transmission Date: 20110831
  Serious: Yes (Hospitalization)
  Sender: FDA-Public Use
  Company Number: None

PATIENT
  Age: 60 Year
  Sex: Female
  Weight: 72.5755 kg

DRUGS (2)
  1. CEFEPIME [Suspect]
     Indication: ABSCESS BACTERIAL
     Dosage: 2G Q8HR IV
     Route: 042
     Dates: start: 20101204, end: 20101216
  2. CEFEPIME [Suspect]
     Indication: PSEUDOMONAS INFECTION
     Dosage: 2G Q8HR IV
     Route: 042
     Dates: start: 20101204, end: 20101216

REACTIONS (1)
  - THROMBOCYTOPENIA [None]
